FAERS Safety Report 20180136 (Version 1)
Quarter: 2021Q4

REPORT INFORMATION
  Report Type: Spontaneous
  Country: US (occurrence: None)
  Receive Date: 20211213
  Receipt Date: 20211213
  Transmission Date: 20220303
  Serious: Yes (Hospitalization)
  Sender: FDA-Public Use
  Company Number: None

PATIENT
  Age: 48 Year
  Sex: Female

DRUGS (11)
  1. GLATIRAMER [Suspect]
     Active Substance: GLATIRAMER
     Indication: Multiple sclerosis
     Dosage: FREQUENCY : 3 TIMES A WEEK;?
     Route: 058
     Dates: start: 20211120
  2. ALBUTEROL AER HFC [Concomitant]
  3. CLOBAZAM [Concomitant]
     Active Substance: CLOBAZAM
  4. CYCLOBENZAPRINE [Concomitant]
     Active Substance: CYCLOBENZAPRINE
  5. ESTRADIOL [Concomitant]
     Active Substance: ESTRADIOL
  6. FUROSEMIDE [Concomitant]
     Active Substance: FUROSEMIDE
  7. LAMOTRIGINE [Concomitant]
     Active Substance: LAMOTRIGINE
  8. LORAZEPAM [Concomitant]
     Active Substance: LORAZEPAM
  9. PANTOPRAZOLE [Concomitant]
     Active Substance: PANTOPRAZOLE
  10. PREGABALIN [Concomitant]
     Active Substance: PREGABALIN
  11. VENLAFAXINE [Concomitant]
     Active Substance: VENLAFAXINE HYDROCHLORIDE

REACTIONS (2)
  - Fall [None]
  - Mobility decreased [None]

NARRATIVE: CASE EVENT DATE: 20211120
